FAERS Safety Report 12741088 (Version 1)
Quarter: 2016Q3

REPORT INFORMATION
  Report Type: Spontaneous
  Country: US (occurrence: US)
  Receive Date: 20160914
  Receipt Date: 20160914
  Transmission Date: 20161109
  Serious: No
  Sender: FDA-Public Use
  Company Number: US-TEVA-592556USA

PATIENT
  Sex: Female
  Weight: 81.72 kg

DRUGS (2)
  1. PANTOPRAZOLE [Suspect]
     Active Substance: PANTOPRAZOLE SODIUM
     Dosage: 80 MILLIGRAM DAILY;
     Route: 048
     Dates: start: 20150827, end: 20150904
  2. LANTANOPROST [Concomitant]
     Active Substance: LATANOPROST
     Route: 065

REACTIONS (1)
  - Fatigue [Recovered/Resolved]
